FAERS Safety Report 13549701 (Version 1)
Quarter: 2017Q2

REPORT INFORMATION
  Report Type: Spontaneous
  Country: US (occurrence: US)
  Receive Date: 20170516
  Receipt Date: 20170516
  Transmission Date: 20170830
  Serious: No
  Sender: FDA-Public Use
  Company Number: US-TEVA-741266ACC

PATIENT
  Sex: Female

DRUGS (1)
  1. OXYCODONE/APAP [Suspect]
     Active Substance: ACETAMINOPHEN\OXYCODONE HYDROCHLORIDE
     Dosage: DOSE STRENGTH:  10/325MG
     Dates: start: 201702

REACTIONS (7)
  - Dizziness [Recovered/Resolved]
  - Somnolence [Unknown]
  - Reaction to drug excipients [Recovered/Resolved]
  - Drug ineffective [Unknown]
  - Headache [Recovered/Resolved]
  - Migraine [Recovered/Resolved]
  - Constipation [Recovered/Resolved]
